FAERS Safety Report 13922130 (Version 1)
Quarter: 2017Q3

REPORT INFORMATION
  Report Type: Report from Study
  Country: FR (occurrence: FR)
  Receive Date: 20170830
  Receipt Date: 20170830
  Transmission Date: 20171127
  Serious: Yes (Disabling, Other)
  Sender: FDA-Public Use
  Company Number: FR-PFIZER INC-2015446028

PATIENT
  Age: 17 Year
  Sex: Female
  Weight: 50 kg

DRUGS (15)
  1. INOTUZUMAB OZOGAMICIN [Suspect]
     Active Substance: INOTUZUMAB OZOGAMICIN
     Dosage: 0.5 MG/M2, CYCLIC
     Route: 042
     Dates: start: 20151125, end: 20151125
  2. METHOTREXATE (METHOTREXATE SODIUM) [Suspect]
     Active Substance: METHOTREXATE SODIUM
     Dosage: 12 MG, UNK
     Route: 037
     Dates: start: 20151223
  3. INOTUZUMAB OZOGAMICIN [Suspect]
     Active Substance: INOTUZUMAB OZOGAMICIN
     Dosage: 0.5 MG/M2, CYCLIC
     Dates: start: 20160106, end: 20160106
  4. INOTUZUMAB OZOGAMICIN [Suspect]
     Active Substance: INOTUZUMAB OZOGAMICIN
     Dosage: UNK
     Dates: start: 20160428, end: 20160428
  5. INOTUZUMAB OZOGAMICIN [Suspect]
     Active Substance: INOTUZUMAB OZOGAMICIN
     Dosage: 0.5 MG/M2, CYCLIC
     Route: 042
     Dates: start: 20151118, end: 20151118
  6. ARACYTINE [Suspect]
     Active Substance: CYTARABINE
     Dosage: 30 MG, UNK
     Route: 037
     Dates: start: 20151218
  7. METHOTREXATE (METHOTREXATE SODIUM) [Suspect]
     Active Substance: METHOTREXATE SODIUM
     Dosage: 12 MG, UNK
     Route: 037
     Dates: start: 20151218
  8. INOTUZUMAB OZOGAMICIN [Suspect]
     Active Substance: INOTUZUMAB OZOGAMICIN
     Dosage: UNK
     Dates: start: 20160421, end: 20160421
  9. INOTUZUMAB OZOGAMICIN [Suspect]
     Active Substance: INOTUZUMAB OZOGAMICIN
     Indication: ACUTE LYMPHOCYTIC LEUKAEMIA RECURRENT
     Dosage: 0.8 MG/M2, CYCLIC
     Route: 042
     Dates: start: 20151109, end: 20151109
  10. HYDROCORTISONE HEMISUCCINATE [Suspect]
     Active Substance: HYDROCORTISONE HEMISUCCINATE
     Dosage: 12 MG, UNK
     Route: 037
     Dates: start: 20151223
  11. INOTUZUMAB OZOGAMICIN [Suspect]
     Active Substance: INOTUZUMAB OZOGAMICIN
     Dosage: 0.5 MG/M2, CYCLIC
     Route: 042
     Dates: start: 20151230, end: 20151230
  12. ARACYTINE [Suspect]
     Active Substance: CYTARABINE
     Dosage: 30 MG, UNK
     Route: 037
     Dates: start: 20151223
  13. INOTUZUMAB OZOGAMICIN [Suspect]
     Active Substance: INOTUZUMAB OZOGAMICIN
     Dosage: 0.8 MG/M2, CYCLIC
     Route: 042
     Dates: start: 20151222, end: 20151222
  14. INOTUZUMAB OZOGAMICIN [Suspect]
     Active Substance: INOTUZUMAB OZOGAMICIN
     Dosage: UNK
     Dates: start: 20160413, end: 20160413
  15. HYDROCORTISONE HEMISUCCINATE [Suspect]
     Active Substance: HYDROCORTISONE HEMISUCCINATE
     Dosage: 12 MG, UNK
     Route: 037
     Dates: start: 20151218

REACTIONS (12)
  - Cytopenia [Recovered/Resolved]
  - Dysaesthesia [Recovering/Resolving]
  - Leukoencephalopathy [Not Recovered/Not Resolved]
  - Pyrexia [Recovered/Resolved]
  - Pyrexia [Recovered/Resolved]
  - Aspartate aminotransferase increased [Unknown]
  - Sensory loss [Not Recovered/Not Resolved]
  - Cytopenia [Recovered/Resolved]
  - Venoocclusive liver disease [Unknown]
  - Oedema [Recovered/Resolved]
  - Areflexia [Not Recovered/Not Resolved]
  - Hyperbilirubinaemia [Unknown]

NARRATIVE: CASE EVENT DATE: 201511
